FAERS Safety Report 18649901 (Version 1)
Quarter: 2020Q4

REPORT INFORMATION
  Report Type: Spontaneous
  Country: US (occurrence: US)
  Receive Date: 20201222
  Receipt Date: 20201222
  Transmission Date: 20210114
  Serious: Yes (Other)
  Sender: FDA-Public Use
  Company Number: US-COOPERSURGICAL, INC.-US-2020CPS003192

PATIENT
  Age: 19 Year
  Sex: Female
  Weight: 88.44 kg

DRUGS (2)
  1. IBUPROFEN. [Concomitant]
     Active Substance: IBUPROFEN
     Indication: PAIN
     Dosage: 600 MG, PRN
     Route: 065
  2. PARAGARD T 380A [Suspect]
     Active Substance: COPPER
     Indication: CONTRACEPTION
     Dosage: UNK
     Route: 015
     Dates: start: 20200213

REACTIONS (4)
  - Pelvic pain [Not Recovered/Not Resolved]
  - Device dislocation [Not Recovered/Not Resolved]
  - Cervical cyst [Unknown]
  - Coital bleeding [Unknown]

NARRATIVE: CASE EVENT DATE: 2020
